FAERS Safety Report 4341958-9 (Version None)
Quarter: 2004Q2

REPORT INFORMATION
  Report Type: 
  Country: None (occurrence: None)
  Receive Date: 20040420
  Receipt Date: 20040401
  Transmission Date: 20050107
  Serious: Yes (Hospitalization, Other)
  Sender: FDA-Public Use
  Company Number: PHBS2004BR04482

PATIENT
  Age: 52 Year
  Sex: Female
  Weight: 70 kg

DRUGS (4)
  1. TEGRETOL-XR [Suspect]
     Indication: CONVULSION
     Dosage: 400 MG, QD
     Route: 048
     Dates: start: 19830101
  2. HYPERICUM PERFORATUM DRY EXTRACT [Concomitant]
     Indication: DEPRESSION
     Dosage: 1 TABLET, QD
     Route: 048
  3. LORATADINE [Concomitant]
     Indication: HYPERSENSITIVITY
  4. FLUOXETINE [Concomitant]
     Indication: NERVOUSNESS

REACTIONS (5)
  - DYSURIA [None]
  - NEPHRITIS [None]
  - RENAL ARTERIOSCLEROSIS [None]
  - RENAL CYST [None]
  - RENAL SURGERY [None]
